FAERS Safety Report 25162672 (Version 1)
Quarter: 2025Q2

REPORT INFORMATION
  Report Type: Report from Study
  Country: CO (occurrence: CO)
  Receive Date: 20250404
  Receipt Date: 20250404
  Transmission Date: 20250716
  Serious: Yes (Other)
  Sender: BAYER
  Company Number: CO-BAYER-2025A045797

PATIENT
  Age: 86 Year
  Sex: Male

DRUGS (2)
  1. NUBEQA [Suspect]
     Active Substance: DAROLUTAMIDE
     Indication: Hormone-refractory prostate cancer
     Dosage: 600 MG, BID
     Route: 048
     Dates: start: 20220611, end: 20220614
  2. NUBEQA [Suspect]
     Active Substance: DAROLUTAMIDE
     Indication: Hormone-refractory prostate cancer
     Dosage: 300 MG, BID
     Route: 048
     Dates: start: 202209

REACTIONS (3)
  - Suicidal ideation [None]
  - Feeling of despair [None]
  - Dyspnoea [None]

NARRATIVE: CASE EVENT DATE: 20220614
